FAERS Safety Report 8156090-6 (Version None)
Quarter: 2012Q1

REPORT INFORMATION
  Report Type: 
  Country: None (occurrence: None)
  Receive Date: 20120216
  Receipt Date: 20120202
  Transmission Date: 20120608
  Serious: Yes (Hospitalization)
  Sender: FDA-Public Use
  Company Number: 024035

PATIENT
  Age: 87 Year
  Sex: Male
  Weight: 46.8 kg

DRUGS (17)
  1. IMIDAPRIL HYDROCHLORIDE (IMIDAPRIL HYDROCHLORIDE) [Concomitant]
  2. METHYCOBAL (MECOBALAMIN) [Concomitant]
  3. PLAVIX [Concomitant]
  4. SELBEX (TEPRENONE) [Concomitant]
  5. FERROUS CITRATE [Concomitant]
  6. LEVOTHYROXINE SODIUM [Concomitant]
  7. GLIMICRON (GLICLAZIDE) [Concomitant]
  8. PRONON (PROPAFENONE HYDROCHLORIDE) [Concomitant]
  9. GLYSENNID [Concomitant]
  10. VITANEURIN (THIAMINE HYDROCHLORIDE) [Concomitant]
  11. BIOFERMIN (BACILLUS SUBTILIS, LACTOBACILLUS ACIDOPHILUS, STREPTOCOCCUS [Concomitant]
  12. PEGAPTANIB SODIUM (PEGAPTANIB SODIUM) UNKNOWN [Suspect]
     Indication: DIABETIC RETINAL OEDEMA
     Dosage: 0.3 MG, UNK
     Dates: start: 20111012
  13. SYMMETREL [Concomitant]
  14. FAMOTIDINE [Concomitant]
  15. NAUZELIN (DOMPERIDONE) [Concomitant]
  16. DEPAS (ETIZOLAM) [Concomitant]
  17. IMIDAFENACIN (IMIDAFENACIN) [Concomitant]

REACTIONS (1)
  - BLOOD CREATINE PHOSPHOKINASE INCREASED [None]
